FAERS Safety Report 5934254-7 (Version None)
Quarter: 2008Q4

REPORT INFORMATION
  Report Type: 
  Country: None (occurrence: None)
  Receive Date: 20081027
  Receipt Date: 20081020
  Transmission Date: 20090506
  Serious: Yes (Life-Threatening, Other)
  Sender: FDA-Public Use
  Company Number: 2008SP002651

PATIENT
  Age: 51 Year
  Sex: Male
  Weight: 85.3 kg

DRUGS (14)
  1. LUNESTA [Suspect]
     Indication: HEPATITIS C
     Dosage: 3 MG;HS;ORAL
     Route: 048
     Dates: start: 20071107, end: 20080101
  2. PEGASYS [Suspect]
     Dosage: 180 UG;QW;SUBCUTANEOUS
     Route: 058
     Dates: start: 20071107, end: 20080101
  3. COPEGUS [Suspect]
     Indication: HEPATITIS C
     Dosage: 1000 MG;QD;ORAL
     Route: 048
     Dates: start: 20080520
  4. SOMA [Suspect]
     Dosage: 350 MG; ORAL
     Route: 048
     Dates: start: 20080520
  5. TRAZODONE HCL [Suspect]
     Dosage: 100 MG;QD;
     Dates: start: 20070829, end: 20070927
  6. TRAZODONE HCL [Suspect]
     Dosage: 100 MG;QD;
     Dates: start: 20080819
  7. XANAX (CON.) [Concomitant]
  8. FLEXERIL /00428402/ (CON.) [Concomitant]
  9. WELLBUTRIN XL (CON.) [Concomitant]
  10. PHENERGAN (CON.) /00033001/ [Concomitant]
  11. ZOLOFT (CON.) /01011401/ [Concomitant]
  12. DARVOCET (CON.) /00220901/ [Concomitant]
  13. VITAMIN B12 (CON.) /00056201/ [Concomitant]
  14. LEXAPRO (PREV.) [Concomitant]

REACTIONS (6)
  - CONDITION AGGRAVATED [None]
  - DEPRESSION [None]
  - MULTIPLE DRUG OVERDOSE INTENTIONAL [None]
  - PAIN [None]
  - REFUSAL OF TREATMENT BY PATIENT [None]
  - SUICIDE ATTEMPT [None]
